FAERS Safety Report 15178175 (Version 2)
Quarter: 2018Q3

REPORT INFORMATION
  Report Type: Spontaneous
  Country: US (occurrence: US)
  Receive Date: 20180721
  Receipt Date: 20180805
  Transmission Date: 20181010
  Serious: Yes (Other)
  Sender: FDA-Public Use
  Company Number: US-AUROBINDO-AUR-APL-2018-035759

PATIENT
  Age: 67 Year
  Sex: Male
  Weight: 155 kg

DRUGS (2)
  1. TAMSULOSIN HYDROCHLORIDE CAPSULES USP 0.4 MG [Suspect]
     Active Substance: TAMSULOSIN HYDROCHLORIDE
     Indication: PROSTATIC DISORDER
     Dosage: 0.4 MILLIGRAM, ONCE A DAY,ONCE DAILY IN THE EVENING A HER DINNER
     Route: 048
     Dates: start: 20180629
  2. TAMSULOSIN HYDROCHLORIDE CAPSULES USP 0.4 MG [Suspect]
     Active Substance: TAMSULOSIN HYDROCHLORIDE
     Indication: URINARY TRACT PAIN

REACTIONS (4)
  - Dizziness [Not Recovered/Not Resolved]
  - Hyperhidrosis [Unknown]
  - Loss of consciousness [Unknown]
  - Asthenia [Unknown]

NARRATIVE: CASE EVENT DATE: 20180630
